FAERS Safety Report 25849936 (Version 3)
Quarter: 2025Q4

REPORT INFORMATION
  Report Type: Spontaneous
  Country: US (occurrence: US)
  Receive Date: 20250926
  Receipt Date: 20251224
  Transmission Date: 20260118
  Serious: Yes (Hospitalization)
  Sender: BOEHRINGER INGELHEIM
  Company Number: US-Komodo Health-a23aa00000AIGzpAAH

PATIENT
  Age: 75 Year
  Sex: Female

DRUGS (8)
  1. JARDIANCE [Suspect]
     Active Substance: EMPAGLIFLOZIN
     Indication: Type 2 diabetes mellitus
     Dates: start: 2021, end: 20250919
  2. TRESIBA [Suspect]
     Active Substance: INSULIN DEGLUDEC
     Indication: Type 2 diabetes mellitus
     Dosage: 100IU/ML
  3. TRESIBA [Suspect]
     Active Substance: INSULIN DEGLUDEC
  4. TRESIBA [Suspect]
     Active Substance: INSULIN DEGLUDEC
  5. TRESIBA [Suspect]
     Active Substance: INSULIN DEGLUDEC
  6. NOVOLOG [Suspect]
     Active Substance: INSULIN ASPART
     Indication: Type 2 diabetes mellitus
  7. INSULIN LISPRO [Concomitant]
     Active Substance: INSULIN LISPRO
     Indication: Product used for unknown indication
  8. JANUVIA [Concomitant]
     Active Substance: SITAGLIPTIN PHOSPHATE
     Indication: Product used for unknown indication

REACTIONS (26)
  - Urinary tract infection [Not Recovered/Not Resolved]
  - Cystitis [Recovering/Resolving]
  - Muscle disorder [Unknown]
  - Escherichia urinary tract infection [Not Recovered/Not Resolved]
  - Fall [Recovered/Resolved]
  - Escherichia infection [Recovered/Resolved]
  - Dysstasia [Recovered/Resolved]
  - Peripheral swelling [Recovered/Resolved]
  - Road traffic accident [Not Recovered/Not Resolved]
  - Muscular weakness [Not Recovered/Not Resolved]
  - Post procedural complication [Not Recovered/Not Resolved]
  - Bacteriuria [Unknown]
  - Decreased appetite [Recovered/Resolved]
  - Hypertonic bladder [Unknown]
  - Renal impairment [Unknown]
  - Bladder irritation [Unknown]
  - Intervertebral disc disorder [Not Recovered/Not Resolved]
  - Anal incontinence [Recovered/Resolved]
  - Contusion [Not Recovered/Not Resolved]
  - Gait disturbance [Unknown]
  - Neck pain [Not Recovered/Not Resolved]
  - Pain in extremity [Recovered/Resolved]
  - Diarrhoea [Not Recovered/Not Resolved]
  - Tremor [Not Recovered/Not Resolved]
  - Pain in extremity [Not Recovered/Not Resolved]
  - Frequent bowel movements [Unknown]

NARRATIVE: CASE EVENT DATE: 20220101
